FAERS Safety Report 14739746 (Version 2)
Quarter: 2018Q2

REPORT INFORMATION
  Report Type: Spontaneous
  Country: US (occurrence: US)
  Receive Date: 20180410
  Receipt Date: 20180430
  Transmission Date: 20180711
  Serious: Yes (Hospitalization)
  Sender: FDA-Public Use
  Company Number: US-UNITED THERAPEUTICS-UNT-2018-004651

PATIENT
  Sex: Male

DRUGS (2)
  1. REMODULIN [Suspect]
     Active Substance: TREPROSTINIL
     Dosage: 0.009 ?G/KG, CONTINUING
     Route: 058
     Dates: start: 20180104, end: 20180423
  2. REMODULIN [Suspect]
     Active Substance: TREPROSTINIL
     Indication: PULMONARY ARTERIAL HYPERTENSION
     Dosage: 0.0092 ?G/KG, CONTINUING
     Route: 058
     Dates: start: 20171228

REACTIONS (3)
  - Infusion site pain [Unknown]
  - Infusion site erythema [Unknown]
  - Cellulitis [Unknown]

NARRATIVE: CASE EVENT DATE: 20180403
